FAERS Safety Report 7427980-4 (Version None)
Quarter: 2011Q2

REPORT INFORMATION
  Report Type: 
  Country: None (occurrence: None)
  Receive Date: 20110413
  Receipt Date: 20110406
  Transmission Date: 20111010
  Serious: Yes (Other)
  Sender: FDA-Public Use
  Company Number: 2011SP015511

PATIENT
  Sex: Female

DRUGS (4)
  1. CYCLOSPORINE [Concomitant]
  2. POSACONAZOLE [Suspect]
     Indication: PRODUCT USED FOR UNKNOWN INDICATION
     Dosage: 200 MG; ; PO
     Route: 048
     Dates: start: 20110103, end: 20110405
  3. CELL CEPT [Concomitant]
  4. DEXAMETHASONE [Concomitant]

REACTIONS (1)
  - HAEMOLYTIC ANAEMIA [None]
